FAERS Safety Report 20652841 (Version 1)
Quarter: 2022Q1

REPORT INFORMATION
  Report Type: Spontaneous
  Country: US (occurrence: US)
  Receive Date: 20220330
  Receipt Date: 20220330
  Transmission Date: 20220423
  Serious: Yes (Other)
  Sender: FDA-Public Use
  Company Number: US-ELI_LILLY_AND_COMPANY-US202203010270

PATIENT
  Age: 27 Year
  Sex: Male
  Weight: 97.9 kg

DRUGS (2)
  1. DULOXETINE HYDROCHLORIDE [Suspect]
     Active Substance: DULOXETINE HYDROCHLORIDE
     Indication: Anxiety
     Dosage: 30 MG, DAILY
     Route: 048
     Dates: start: 20210607, end: 20210626
  2. FISH OIL [Concomitant]
     Active Substance: FISH OIL
     Indication: Hypertriglyceridaemia
     Dosage: UNK

REACTIONS (1)
  - Drug-induced liver injury [Recovering/Resolving]

NARRATIVE: CASE EVENT DATE: 20210812
